FAERS Safety Report 11411025 (Version 1)
Quarter: 2015Q3

REPORT INFORMATION
  Report Type: Spontaneous
  Country: US (occurrence: US)
  Receive Date: 20150821
  Receipt Date: 20150821
  Transmission Date: 20151125
  Serious: No
  Sender: FDA-Public Use
  Company Number: US-ELI_LILLY_AND_COMPANY-US201001002976

PATIENT
  Age: 32 Year
  Sex: Female

DRUGS (6)
  1. ZANTAC [Concomitant]
     Active Substance: RANITIDINE HYDROCHLORIDE
     Indication: DYSPEPSIA
     Dosage: 75 MG, UNKNOWN
     Route: 048
  2. METFORMIN [Concomitant]
     Active Substance: METFORMIN HYDROCHLORIDE
     Indication: INSULIN RESISTANCE
     Dosage: 1000 MG, 2/D
     Dates: start: 2006
  3. CALCIUM [Concomitant]
     Active Substance: CALCIUM
     Dosage: 500 MG, 2/D
     Route: 048
  4. HUMULIN N [Suspect]
     Active Substance: INSULIN HUMAN
     Indication: GESTATIONAL DIABETES
     Dosage: 22 U, EACH EVENING
     Dates: start: 20090918
  5. HUMULIN N [Suspect]
     Active Substance: INSULIN HUMAN
     Dosage: 40 U, EACH EVENING
     Dates: start: 20100103
  6. PRENATAL [Concomitant]
     Active Substance: VITAMINS
     Dosage: 1 D/F, DAILY (1/D)
     Route: 048
     Dates: start: 2004

REACTIONS (3)
  - Blood glucose increased [Recovered/Resolved]
  - Exposure during pregnancy [Not Recovered/Not Resolved]
  - Drug ineffective [Recovered/Resolved]

NARRATIVE: CASE EVENT DATE: 2009
